FAERS Safety Report 6719173-0 (Version None)
Quarter: 2010Q2

REPORT INFORMATION
  Report Type: 
  Country: None (occurrence: None)
  Receive Date: 20100511
  Receipt Date: 20100511
  Transmission Date: 20101027
  Serious: No
  Sender: FDA-Public Use
  Company Number: None

PATIENT
  Age: 2 Year
  Sex: Female
  Weight: 10.8863 kg

DRUGS (2)
  1. CHILDREN'S TYLENOL [Suspect]
     Indication: INFLUENZA
     Dosage: 5 ML EVERY 4 HOURS PO
     Route: 048
     Dates: start: 20100228, end: 20100302
  2. CHILDREN'S TYLENOL [Suspect]
     Indication: PYREXIA
     Dosage: 5 ML EVERY 4 HOURS PO
     Route: 048
     Dates: start: 20100228, end: 20100302

REACTIONS (2)
  - PRODUCT QUALITY ISSUE [None]
  - PSYCHOMOTOR HYPERACTIVITY [None]
